FAERS Safety Report 22042112 (Version 2)
Quarter: 2023Q1

REPORT INFORMATION
  Report Type: Spontaneous
  Country: US (occurrence: US)
  Receive Date: 20230227
  Receipt Date: 20230313
  Transmission Date: 20230418
  Serious: Yes (Hospitalization)
  Sender: FDA-Public Use
  Company Number: US-BRISTOL-MYERS SQUIBB COMPANY-2023-028725

PATIENT
  Age: 69 Year
  Sex: Female

DRUGS (1)
  1. LENALIDOMIDE [Suspect]
     Active Substance: LENALIDOMIDE
     Indication: Plasma cell myeloma
     Dosage: TAKE ONE WHOLE CAPSULE BY MOUTH ONCE DAILY FOR THE FIRST 21 DAYS OF EVERY 28 DAY CHEMOTHERAPY CYCLE
     Route: 048
     Dates: start: 20230127

REACTIONS (2)
  - Renal disorder [Recovering/Resolving]
  - Haemoglobin decreased [Recovering/Resolving]
